FAERS Safety Report 16018374 (Version 1)
Quarter: 2019Q1

REPORT INFORMATION
  Report Type: Spontaneous
  Country: US (occurrence: US)
  Receive Date: 20190228
  Receipt Date: 20190228
  Transmission Date: 20190418
  Serious: No
  Sender: FDA-Public Use
  Company Number: US-BAYER-2019-042458

PATIENT
  Sex: Female
  Weight: 66 kg

DRUGS (3)
  1. CLARITIN [Suspect]
     Active Substance: LORATADINE
     Indication: HYPERSENSITIVITY
     Dosage: 1 DF, PRN
     Route: 048
  2. CLARITIN [Suspect]
     Active Substance: LORATADINE
     Indication: NASOPHARYNGITIS
     Dosage: 1 DF, PRN
     Route: 048
  3. VITAMIN B7 [Concomitant]
     Dosage: 2 DF

REACTIONS (7)
  - Feeling abnormal [Recovered/Resolved]
  - Dysstasia [Recovered/Resolved]
  - Head discomfort [Unknown]
  - Headache [Recovered/Resolved]
  - Lethargy [Recovered/Resolved]
  - Drug ineffective [Unknown]
  - Dropped head syndrome [Recovered/Resolved]

NARRATIVE: CASE EVENT DATE: 201902
